FAERS Safety Report 10235166 (Version 1)
Quarter: 2014Q2

REPORT INFORMATION
  Report Type: Spontaneous
  Country: US (occurrence: None)
  Receive Date: 20140611
  Receipt Date: 20140611
  Transmission Date: 20141212
  Serious: Yes (Other)
  Sender: FDA-Public Use
  Company Number: US-TORRENT-00000763

PATIENT
  Sex: Female

DRUGS (2)
  1. DULOXETINE DELAYED-RELEASE [Suspect]
     Indication: PRODUCT USED FOR UNKNOWN INDICATION
     Dosage: 1 DAILY
     Dates: start: 20140527
  2. DETZICOL (MESALAMINE) [Concomitant]

REACTIONS (3)
  - Accidental overdose [None]
  - Somnolence [None]
  - Wrong drug administered [None]
